FAERS Safety Report 10081181 (Version 2)
Quarter: 2014Q2

REPORT INFORMATION
  Report Type: Report from Study
  Country: CA (occurrence: CA)
  Receive Date: 20140416
  Receipt Date: 20140505
  Transmission Date: 20141212
  Serious: Yes (Hospitalization)
  Sender: FDA-Public Use
  Company Number: CA-ABBVIE-14P-028-1225011-00

PATIENT
  Age: 12 Year
  Sex: Female
  Weight: 44 kg

DRUGS (2)
  1. HUMIRA [Suspect]
     Indication: CROHN^S DISEASE
     Route: 058
     Dates: start: 20130524
  2. METHOTREXATE [Concomitant]
     Indication: PRODUCT USED FOR UNKNOWN INDICATION
     Route: 058
     Dates: start: 2008

REACTIONS (8)
  - Constipation [Recovering/Resolving]
  - Diarrhoea [Unknown]
  - Haematochezia [Unknown]
  - Defaecation urgency [Unknown]
  - Abdominal pain [Unknown]
  - Rectal tenesmus [Unknown]
  - Protein C increased [Unknown]
  - Faecal calprotectin increased [Unknown]
